FAERS Safety Report 10157999 (Version 2)
Quarter: 2014Q2

REPORT INFORMATION
  Report Type: Spontaneous
  Country: FR (occurrence: FR)
  Receive Date: 20140507
  Receipt Date: 20140521
  Transmission Date: 20141212
  Serious: Yes (Hospitalization)
  Sender: FDA-Public Use
  Company Number: FR-GLAXOSMITHKLINE-B0990749A

PATIENT
  Age: 79 Year
  Sex: Male

DRUGS (23)
  1. ULTIVA [Suspect]
     Indication: ANAESTHESIA
     Route: 042
     Dates: start: 20121018, end: 20121018
  2. ZINNAT [Suspect]
     Indication: ANTIBIOTIC THERAPY
     Route: 042
     Dates: start: 20121018, end: 20121018
  3. HEPARIN SODIUM [Suspect]
     Indication: EXTRACORPOREAL CIRCULATION
     Dosage: 24000IU PER DAY
     Route: 042
     Dates: start: 20121018, end: 20121018
  4. PLAVIX [Suspect]
     Indication: PROPHYLAXIS
     Dosage: 1TAB PER DAY
     Route: 048
  5. MIDAZOLAM [Suspect]
     Indication: ANAESTHESIA
     Route: 042
     Dates: start: 20121018, end: 20121018
  6. KETAMINE [Suspect]
     Indication: ANAESTHESIA
     Route: 042
     Dates: start: 20121018, end: 20121018
  7. PROTAMINE [Suspect]
     Route: 042
     Dates: start: 20121018, end: 20121018
  8. EXACYL [Suspect]
     Indication: HAEMORRHAGE PROPHYLAXIS
     Route: 042
     Dates: start: 20121018, end: 20121018
  9. NEBIVOLOL [Suspect]
     Indication: PROPHYLAXIS
     Dosage: 1TAB IN THE MORNING
     Route: 048
     Dates: end: 20121018
  10. PROPOFOL [Suspect]
     Indication: ANAESTHESIA
     Route: 042
     Dates: start: 20121018, end: 20121018
  11. GABAPENTIN [Suspect]
     Dosage: 1UNIT PER DAY
     Route: 048
     Dates: start: 20121019, end: 20121019
  12. SUFENTANIL [Suspect]
     Indication: ANAESTHESIA
     Route: 042
     Dates: start: 20121018, end: 20121018
  13. ESMERON [Suspect]
     Indication: ANAESTHESIA
     Route: 042
     Dates: start: 20121018, end: 20121018
  14. LEXOMIL [Suspect]
     Indication: ANXIETY
     Dosage: .5UNIT SEE DOSAGE TEXT
     Route: 048
     Dates: end: 20121018
  15. ATARAX [Concomitant]
     Indication: ANXIETY
     Dosage: 50MG TWICE PER DAY
     Route: 048
     Dates: start: 20121017, end: 20121020
  16. LYRICA [Concomitant]
     Dosage: 1CAP TWICE PER DAY
     Route: 048
  17. MIANSERINE [Concomitant]
     Indication: ANXIETY
     Dosage: 1TAB PER DAY
     Route: 048
  18. INEGY [Concomitant]
  19. MANIDIPINE [Concomitant]
     Dosage: 10MG IN THE MORNING
  20. NISISCO [Concomitant]
     Dates: end: 20121017
  21. HEMOSTATIC [Concomitant]
  22. EPHEDRINE [Concomitant]
     Route: 065
  23. NORADRENALINE [Concomitant]

REACTIONS (2)
  - Post procedural haemorrhage [Recovered/Resolved]
  - Pericardial haemorrhage [Recovered/Resolved]
